FAERS Safety Report 18171299 (Version 6)
Quarter: 2021Q2

REPORT INFORMATION
  Report Type: Report from Study
  Country: AR (occurrence: AR)
  Receive Date: 20200819
  Receipt Date: 20210604
  Transmission Date: 20210717
  Serious: Yes (Death, Hospitalization, Other)
  Sender: FDA-Public Use
  Company Number: NVSC2020AR227927

PATIENT
  Age: 48 Year
  Sex: Male

DRUGS (5)
  1. SANDOSTATIN LAR DEPOT [Suspect]
     Active Substance: OCTREOTIDE ACETATE
  2. SANDOSTATIN LAR DEPOT [Suspect]
     Active Substance: OCTREOTIDE ACETATE
     Dosage: 30 MG, QMO (EVERY 28 DAYS)
     Route: 030
     Dates: start: 202008
  3. AFINITOR [Suspect]
     Active Substance: EVEROLIMUS
     Dosage: 10 MG
     Route: 048
  4. SANDOSTATIN LAR DEPOT [Suspect]
     Active Substance: OCTREOTIDE ACETATE
     Indication: NEUROENDOCRINE TUMOUR
     Dosage: 20 MG, QMO (EVERY 28 DAYS)
     Route: 030
     Dates: start: 20180813
  5. AFINITOR [Suspect]
     Active Substance: EVEROLIMUS
     Indication: NEUROENDOCRINE TUMOUR
     Dosage: 5 MG, QD
     Route: 048
     Dates: start: 20200813, end: 20210331

REACTIONS (15)
  - Internal haemorrhage [Unknown]
  - Large intestine perforation [Unknown]
  - Malignant mesenteric neoplasm [Unknown]
  - Malignant neoplasm progression [Fatal]
  - Peritonitis [Unknown]
  - Speech disorder [Unknown]
  - Intestinal perforation [Unknown]
  - Thrombosis [Unknown]
  - Metastases to liver [Unknown]
  - Neuroendocrine tumour [Fatal]
  - Intestinal obstruction [Unknown]
  - Small intestine carcinoma [Unknown]
  - Metastases to peritoneum [Unknown]
  - Chronic kidney disease [Unknown]
  - Hepatitis [Unknown]

NARRATIVE: CASE EVENT DATE: 20210101
